FAERS Safety Report 6385716-2 (Version None)
Quarter: 2009Q4

REPORT INFORMATION
  Report Type: 
  Country: None (occurrence: None)
  Receive Date: 20091002
  Receipt Date: 20080930
  Transmission Date: 20100525
  Serious: No
  Sender: FDA-Public Use
  Company Number: US-ASTRAZENECA-2008UW21046

PATIENT
  Age: 69 Year
  Sex: Female
  Weight: 95.3 kg

DRUGS (3)
  1. ARIMIDEX [Suspect]
     Indication: BREAST CANCER FEMALE
     Route: 048
     Dates: start: 20020101
  2. CRESTOR [Suspect]
     Route: 048
     Dates: start: 20080501
  3. CARDIZEM [Concomitant]

REACTIONS (4)
  - BLOOD CHOLESTEROL INCREASED [None]
  - HEART RATE INCREASED [None]
  - PRURITUS [None]
  - URTICARIA [None]
